FAERS Safety Report 8596932-3 (Version None)
Quarter: 2012Q3

REPORT INFORMATION
  Report Type: 
  Country: None (occurrence: None)
  Receive Date: 20120815
  Receipt Date: 20120803
  Transmission Date: 20120928
  Serious: Yes (Hospitalization)
  Sender: FDA-Public Use
  Company Number: RU-AMGEN-UK229526

PATIENT
  Age: 67 Year
  Sex: Male

DRUGS (4)
  1. DEFATTED AND DEPROTEINISED SEA FISH EXTRACT [Concomitant]
     Dosage: UNK UNK, UNK
     Dates: start: 20070312, end: 20070323
  2. GLUCOSAMINE SULFATE [Concomitant]
     Dosage: UNK UNK, UNK
     Dates: start: 20070312, end: 20070427
  3. ALFACALCIDOL [Concomitant]
     Dosage: .5 A?G, UNK
     Dates: start: 20070504
  4. CINACALCET HYDROCHLORIDE [Suspect]
     Dosage: UNK UNK, QD
     Route: 048
     Dates: start: 20070131

REACTIONS (1)
  - GASTRITIS EROSIVE [None]
